FAERS Safety Report 21701127 (Version 4)
Quarter: 2023Q1

REPORT INFORMATION
  Report Type: Spontaneous
  Country: US (occurrence: US)
  Receive Date: 20221208
  Receipt Date: 20230210
  Transmission Date: 20230418
  Serious: Yes (Other)
  Sender: FDA-Public Use
  Company Number: US-PFIZER INC-PV202200118088

PATIENT
  Age: 72 Year
  Sex: Male

DRUGS (1)
  1. SUTENT [Suspect]
     Active Substance: SUNITINIB MALATE
     Dosage: 50 MG

REACTIONS (11)
  - Multiple sclerosis [Unknown]
  - Diabetes mellitus [Unknown]
  - Second primary malignancy [Unknown]
  - Bladder cancer [Unknown]
  - Second primary malignancy [Unknown]
  - Prostate cancer [Unknown]
  - Second primary malignancy [Unknown]
  - Gastric cancer [Unknown]
  - Deafness [Unknown]
  - COVID-19 [Recovering/Resolving]
  - Illness [Recovering/Resolving]
